FAERS Safety Report 6870701-4 (Version None)
Quarter: 2010Q3

REPORT INFORMATION
  Report Type: 
  Country: None (occurrence: None)
  Receive Date: 20100723
  Receipt Date: 20090526
  Transmission Date: 20110219
  Serious: No
  Sender: FDA-Public Use
  Company Number: A0829529A

PATIENT
  Age: 62 Year
  Sex: Male

DRUGS (2)
  1. OLUX [Suspect]
     Dosage: 0PCT TWICE PER DAY
     Route: 061
     Dates: start: 20090526
  2. ASPIRIN [Concomitant]
     Indication: PRODUCT USED FOR UNKNOWN INDICATION
     Dosage: 81MG PER DAY
     Route: 048

REACTIONS (5)
  - DYSGEUSIA [None]
  - EPISTAXIS [None]
  - OFF LABEL USE [None]
  - THERAPEUTIC RESPONSE UNEXPECTED [None]
  - WRONG TECHNIQUE IN DRUG USAGE PROCESS [None]
